FAERS Safety Report 18109042 (Version 4)
Quarter: 2020Q4

REPORT INFORMATION
  Report Type: Spontaneous
  Country: US (occurrence: US)
  Receive Date: 20200804
  Receipt Date: 20201204
  Transmission Date: 20210113
  Serious: No
  Sender: FDA-Public Use
  Company Number: US-PFIZER INC-2020293829

PATIENT
  Age: 61 Year
  Sex: Female

DRUGS (1)
  1. IBRANCE [Suspect]
     Active Substance: PALBOCICLIB
     Indication: INTRADUCTAL PROLIFERATIVE BREAST LESION
     Dosage: UNK
     Dates: start: 20190220, end: 20200707

REACTIONS (2)
  - Decreased appetite [Unknown]
  - Fatigue [Not Recovered/Not Resolved]
